FAERS Safety Report 6607690-3 (Version None)
Quarter: 2010Q1

REPORT INFORMATION
  Report Type: 
  Country: None (occurrence: None)
  Receive Date: 20100301
  Receipt Date: 20100217
  Transmission Date: 20100710
  Serious: Yes (Death)
  Sender: FDA-Public Use
  Company Number: CA-ELI_LILLY_AND_COMPANY-CA201002004699

PATIENT
  Age: 16 Year
  Sex: Male

DRUGS (3)
  1. ZYPREXA [Suspect]
     Indication: AFFECTIVE DISORDER
  2. CELEXA [Concomitant]
     Indication: DEPRESSION
  3. ATIVAN [Concomitant]

REACTIONS (5)
  - HYPERTROPHIC CARDIOMYOPATHY [None]
  - LYMPHADENOPATHY [None]
  - OFF LABEL USE [None]
  - SPLENOMEGALY [None]
  - THYMUS ENLARGEMENT [None]
